FAERS Safety Report 5506159-7 (Version None)
Quarter: 2007Q4

REPORT INFORMATION
  Report Type: 
  Country: None (occurrence: None)
  Receive Date: 20071105
  Receipt Date: 20071026
  Transmission Date: 20080405
  Serious: Yes (Other)
  Sender: FDA-Public Use
  Company Number: PHEH2007US10850

PATIENT
  Sex: Female

DRUGS (2)
  1. METOPIRONE T04670+CAPS [Suspect]
     Indication: DIAGNOSTIC PROCEDURE
     Dosage: 7 DF, UNK
     Route: 048
     Dates: start: 20070802
  2. LEVOTHYROXINE SODIUM [Suspect]
     Dosage: 100 UNK, UNK

REACTIONS (5)
  - BODY TEMPERATURE DECREASED [None]
  - FEELING COLD [None]
  - HYPERHIDROSIS [None]
  - PALLOR [None]
  - SYNCOPE [None]
